FAERS Safety Report 23375712 (Version 1)
Quarter: 2024Q1

REPORT INFORMATION
  Report Type: Spontaneous
  Country: BR (occurrence: BR)
  Receive Date: 20240107
  Receipt Date: 20240107
  Transmission Date: 20240410
  Serious: Yes (Other)
  Sender: FDA-Public Use
  Company Number: BR-AMGEN-BRASP2024000206

PATIENT
  Age: 33 Year
  Sex: Male

DRUGS (6)
  1. TRASTUZUMAB [Suspect]
     Active Substance: TRASTUZUMAB
     Indication: Lung cancer metastatic
     Dosage: UNK (10 CYCLES)
     Route: 065
  2. AFATINIB [Concomitant]
     Active Substance: AFATINIB
     Indication: Metastases to liver
     Dosage: UNK
     Route: 065
  3. BEVACIZUMAB;CARBOPLATIN;PACLITAXEL [Concomitant]
     Indication: Metastases to liver
     Dosage: UNK (12 CYCLES)
     Route: 065
  4. PERTUZUMAB [Concomitant]
     Active Substance: PERTUZUMAB
     Indication: Metastases to liver
     Dosage: UNK (10 CYCLES)
     Route: 065
  5. DOCETAXEL [Concomitant]
     Active Substance: DOCETAXEL\DOCETAXEL ANHYDROUS
     Indication: Metastases to liver
     Dosage: UNK (10 CYCLES)
     Route: 065
  6. ADO-TRASTUZUMAB EMTANSINE [Concomitant]
     Active Substance: ADO-TRASTUZUMAB EMTANSINE
     Indication: Metastases to liver
     Dosage: UNK (6 CYCLES)
     Route: 065

REACTIONS (2)
  - Lung cancer metastatic [Unknown]
  - Off label use [Unknown]
